FAERS Safety Report 17002534 (Version 2)
Quarter: 2019Q4

REPORT INFORMATION
  Report Type: Report from Study
  Country: None (occurrence: US)
  Receive Date: 20191107
  Receipt Date: 20191208
  Transmission Date: 20200122
  Serious: Yes (Other)
  Sender: FDA-Public Use
  Company Number: US-ABBVIE-19K-163-2990880-00

PATIENT
  Sex: Female

DRUGS (2)
  1. HUMIRA [Suspect]
     Active Substance: ADALIMUMAB
     Indication: PSORIASIS
  2. HUMIRA [Suspect]
     Active Substance: ADALIMUMAB
     Indication: PSORIATIC ARTHROPATHY
     Route: 058

REACTIONS (20)
  - Memory impairment [Unknown]
  - Hypoaesthesia [Unknown]
  - Hypertension [Unknown]
  - Back pain [Unknown]
  - Trigger finger [Unknown]
  - Intervertebral disc degeneration [Unknown]
  - Blood cholesterol abnormal [Unknown]
  - Paraesthesia [Unknown]
  - Loss of consciousness [Unknown]
  - Carpal tunnel syndrome [Unknown]
  - Muscle spasms [Unknown]
  - Arthropathy [Unknown]
  - Weight increased [Unknown]
  - Insomnia [Unknown]
  - Hyperhidrosis [Unknown]
  - Fatigue [Unknown]
  - Cough [Unknown]
  - Peripheral swelling [Unknown]
  - Diabetes mellitus [Unknown]
  - Thyroid function test abnormal [Unknown]
